FAERS Safety Report 14411983 (Version 1)
Quarter: 2018Q1

REPORT INFORMATION
  Report Type: Spontaneous
  Country: US (occurrence: US)
  Receive Date: 20180117
  Receipt Date: 20180117
  Transmission Date: 20180509
  Serious: Yes (Disabling)
  Sender: FDA-Public Use
  Company Number: None

PATIENT
  Age: 29 Year
  Sex: Female
  Weight: 58.5 kg

DRUGS (10)
  1. VITAMIN D3 [Concomitant]
     Active Substance: CHOLECALCIFEROL
  2. PROBIOTIC [Concomitant]
     Active Substance: PROBIOTICS NOS
  3. VITAMIN C [Concomitant]
     Active Substance: ASCORBIC ACID
  4. COLLAGEN [Concomitant]
     Active Substance: COLLAGEN
  5. DESONIDE. [Suspect]
     Active Substance: DESONIDE
     Indication: ECZEMA
     Dates: start: 19890202, end: 20140814
  6. LIVER DETOX [Concomitant]
  7. HYLARONIC ACID [Concomitant]
  8. VITAMIN B COMPLEX [Concomitant]
     Active Substance: CYANOCOBALAMIN\DEXPANTHENOL\NIACINAMIDE\PYRIDOXINE HYDROCHLORIDE\RIBOFLAVIN 5^-PHOSPHATE SODIUM\THIAMINE HYDROCHLORIDE\VITAMIN B COMPLEX
  9. TRIPHALA [Concomitant]
  10. NEEM [Concomitant]

REACTIONS (2)
  - Drug dependence [None]
  - Steroid withdrawal syndrome [None]

NARRATIVE: CASE EVENT DATE: 20140814
